FAERS Safety Report 5522042-5 (Version None)
Quarter: 2007Q4

REPORT INFORMATION
  Report Type: 
  Country: None (occurrence: None)
  Receive Date: 20071120
  Receipt Date: 20071106
  Transmission Date: 20080405
  Serious: Yes (Other)
  Sender: FDA-Public Use
  Company Number: B0495803A

PATIENT
  Age: 41 Year
  Sex: Female

DRUGS (6)
  1. ASPIRIN [Suspect]
     Dosage: 81MG PER DAY
     Route: 048
  2. PREDNISONE TAB [Suspect]
     Dosage: 10MG PER DAY
     Route: 048
  3. CALCIUM SUPPLEMENT [Suspect]
     Dosage: 1000MG PER DAY
     Route: 048
  4. HEPARIN [Suspect]
     Dosage: 30MG TWICE PER DAY
     Route: 058
  5. PROGESTERONE [Suspect]
     Route: 065
  6. IMMUNE GLOBULIN INTRAVENOUS (HUMAN) [Suspect]
     Dosage: 400MGK CYCLIC
     Route: 042

REACTIONS (4)
  - ABORTION SPONTANEOUS [None]
  - DELIVERY [None]
  - HAEMORRHAGE [None]
  - INTRA-UTERINE DEATH [None]
